FAERS Safety Report 8139880-5 (Version None)
Quarter: 2012Q1

REPORT INFORMATION
  Report Type: 
  Country: None (occurrence: None)
  Receive Date: 20120215
  Receipt Date: 20120209
  Transmission Date: 20120608
  Serious: Yes (Death)
  Sender: FDA-Public Use
  Company Number: US-CELGENEUS-163-21880-12021186

PATIENT
  Sex: Male

DRUGS (16)
  1. CARVEDILOL [Concomitant]
     Dosage: 6.25 MILLIGRAM
     Route: 065
  2. LISINOPRIL [Concomitant]
     Dosage: 2.5 MILLIGRAM
     Route: 065
  3. REVLIMID [Suspect]
     Indication: MULTIPLE MYELOMA
     Dosage: 5 MILLIGRAM
     Route: 048
     Dates: start: 20110120
  4. SIMVASTATIN [Concomitant]
     Dosage: 5 MILLIGRAM
     Route: 065
  5. VITAMIN B-12 [Concomitant]
     Dosage: 250 MICROGRAM
     Route: 065
  6. CALCIUM [Concomitant]
     Dosage: 500 MILLIGRAM
     Route: 065
  7. LEVOTHYROXINE SODIUM [Concomitant]
     Dosage: 100 MICROGRAM
     Route: 065
  8. COUMADIN [Concomitant]
     Dosage: 1 MILLIGRAM
     Route: 065
  9. PANTOPRAZOLE [Concomitant]
     Dosage: 40 MILLIGRAM
     Route: 065
  10. PROCHLORPERAZINE [Concomitant]
     Dosage: 5 MILLIGRAM
     Route: 065
  11. ATIVAN [Concomitant]
     Dosage: .5 MILLIGRAM
     Route: 065
  12. DECADRON [Concomitant]
     Dosage: .5 MILLIGRAM
     Route: 065
  13. FOLIC ACID [Concomitant]
     Dosage: 1 MILLIGRAM
     Route: 065
  14. BACLOFEN [Concomitant]
     Dosage: 10 MILLIGRAM
     Route: 065
  15. FISH OIL [Concomitant]
     Route: 065
  16. VITAMIN D [Concomitant]
     Route: 065

REACTIONS (1)
  - DEATH [None]
